FAERS Safety Report 18466428 (Version 1)
Quarter: 2020Q4

REPORT INFORMATION
  Report Type: Spontaneous
  Country: US (occurrence: US)
  Receive Date: 20201105
  Receipt Date: 20201105
  Transmission Date: 20210114
  Serious: Yes (Life-Threatening, Hospitalization, Other)
  Sender: FDA-Public Use
  Company Number: US-EMCURE PHARMACEUTICALS LTD-2020-EPL-001733

PATIENT
  Age: 12 Year
  Sex: Male

DRUGS (6)
  1. ARIPIPRAZOLE. [Suspect]
     Active Substance: ARIPIPRAZOLE
     Indication: PRODUCT USED FOR UNKNOWN INDICATION
     Dosage: , PER DAY2.5 MILLIGRAM
  2. FLUOXETINE [Suspect]
     Active Substance: FLUOXETINE HYDROCHLORIDE
     Indication: PRODUCT USED FOR UNKNOWN INDICATION
     Dosage: 20 MILLIGRAM, PER DAY
  3. CYPROHEPTADINE. [Suspect]
     Active Substance: CYPROHEPTADINE
     Indication: DECREASED APPETITE
     Dosage: 12 MILLIGRAM, PER DAY
  4. CLONIDINE. [Concomitant]
     Active Substance: CLONIDINE
     Dosage: 0.3 MILLIGRAM, PER DAY
  5. ONDANSETRON [Suspect]
     Active Substance: ONDANSETRON
     Indication: PRODUCT USED FOR UNKNOWN INDICATION
     Dosage: 1 DOSAGE FORM, TOTAL
     Route: 042
  6. CLONIDINE. [Concomitant]
     Active Substance: CLONIDINE
     Dosage: 0.2 MILLIGRAM, PER 12 HOUR

REACTIONS (2)
  - Off label use [Unknown]
  - Serotonin syndrome [Recovering/Resolving]
